FAERS Safety Report 5801885-4 (Version None)
Quarter: 2008Q3

REPORT INFORMATION
  Report Type: 
  Country: None (occurrence: None)
  Receive Date: 20080707
  Receipt Date: 20080703
  Transmission Date: 20090109
  Serious: Yes (Other)
  Sender: FDA-Public Use
  Company Number: AU-ASTRAZENECA-2008AP05136

PATIENT
  Age: 52 Year
  Sex: Female

DRUGS (1)
  1. PULMICORT-100 [Suspect]
     Route: 055
     Dates: start: 20080629, end: 20080702

REACTIONS (5)
  - OESOPHAGEAL ULCER [None]
  - OROPHARYNGEAL BLISTERING [None]
  - THROAT LESION [None]
  - THROAT TIGHTNESS [None]
  - TONGUE BLISTERING [None]
